FAERS Safety Report 6382930-7 (Version None)
Quarter: 2009Q3

REPORT INFORMATION
  Report Type: 
  Country: None (occurrence: None)
  Receive Date: 20090930
  Receipt Date: 20090917
  Transmission Date: 20100115
  Serious: Yes (Hospitalization)
  Sender: FDA-Public Use
  Company Number: PH-PFIZER INC-2009269462

PATIENT
  Age: 37 Year

DRUGS (2)
  1. MEDROL [Suspect]
     Dosage: 16 MG, 3X/DAY
  2. SOLU-MEDROL [Suspect]
     Indication: OPTIC NEURITIS
     Dosage: 500 MG, UNK

REACTIONS (1)
  - PSYCHOTIC DISORDER [None]
